FAERS Safety Report 10572397 (Version 1)
Quarter: 2014Q4

REPORT INFORMATION
  Report Type: Spontaneous
  Country: IT (occurrence: IT)
  Receive Date: 20141109
  Receipt Date: 20141109
  Transmission Date: 20150529
  Serious: Yes (Other)
  Sender: FDA-Public Use
  Company Number: IT-BRISTOL-MYERS SQUIBB COMPANY-21549852

PATIENT
  Age: 59 Year
  Sex: Female

DRUGS (6)
  1. ESOMEPRAZOLE [Concomitant]
     Active Substance: ESOMEPRAZOLE
  2. FOLINA [Concomitant]
     Active Substance: FOLIC ACID
  3. SUCRALFATE. [Concomitant]
     Active Substance: SUCRALFATE
  4. FERRO-GRADUMET [Concomitant]
     Active Substance: FERROUS SULFATE\FERROUS SULFATE, DRIED
  5. DOMPERIDONE [Concomitant]
     Active Substance: DOMPERIDONE
  6. COUMADIN [Suspect]
     Active Substance: WARFARIN SODIUM
     Indication: ATRIAL FIBRILLATION
     Dosage: 1DF=1 UNIT NOS
     Route: 048
     Dates: start: 20140113, end: 20140730

REACTIONS (2)
  - Blood pressure increased [Unknown]
  - Gingival bleeding [Recovered/Resolved]

NARRATIVE: CASE EVENT DATE: 20140729
